FAERS Safety Report 6555122-6 (Version None)
Quarter: 2010Q1

REPORT INFORMATION
  Report Type: 
  Country: None (occurrence: None)
  Receive Date: 20100126
  Receipt Date: 20100126
  Transmission Date: 20100710
  Serious: No
  Sender: FDA-Public Use
  Company Number: None

PATIENT

DRUGS (1)
  1. CYMBALTA [Suspect]
     Indication: FIBROMYALGIA
     Dosage: 1 DAILY 9 MONTH-12 MONTH OF YEAR 2009

REACTIONS (14)
  - ABDOMINAL DISCOMFORT [None]
  - ABNORMAL DREAMS [None]
  - BACK PAIN [None]
  - DRY MOUTH [None]
  - GAIT DISTURBANCE [None]
  - HEADACHE [None]
  - INSOMNIA [None]
  - LAZINESS [None]
  - LIP DRY [None]
  - MENTAL IMPAIRMENT [None]
  - PAIN IN EXTREMITY [None]
  - PRURITUS GENERALISED [None]
  - THERMAL BURN [None]
  - TONGUE DRY [None]
